FAERS Safety Report 9786612 (Version 1)
Quarter: 2013Q4

REPORT INFORMATION
  Report Type: Spontaneous
  Country: US (occurrence: US)
  Receive Date: 20131227
  Receipt Date: 20131227
  Transmission Date: 20140711
  Serious: Yes (Hospitalization)
  Sender: FDA-Public Use
  Company Number: PHHY2013US149610

PATIENT
  Age: 56 Year
  Sex: Female
  Weight: 57 kg

DRUGS (12)
  1. WARFARIN [Suspect]
     Indication: DEEP VEIN THROMBOSIS
     Dosage: 5 MG, UNK
     Route: 065
  2. WARFARIN [Interacting]
     Dosage: 2.5 MG, UNK
     Route: 065
  3. WARFARIN [Interacting]
     Dosage: 3 MG, UNK
     Route: 065
  4. WARFARIN [Interacting]
     Dosage: 3 MG, UNK
     Route: 065
  5. BISMUTH SUBSALICYLATE [Interacting]
     Indication: DIARRHOEA
     Dosage: 30 ML, Q4H
  6. LOPERAMIDE [Concomitant]
     Dosage: 4 MG, Q6H
  7. DIPHENOXYLATE HYDROCHLORIDE AND ATROPINE SULF [Concomitant]
     Dosage: 1 DF, Q6H
  8. MULTIVITAMIN [Concomitant]
     Dosage: 5 ML, DAILY
  9. VITAMIN D3 [Concomitant]
     Dosage: 50000 DF, QW
  10. PREDNISONE [Concomitant]
     Dosage: 10 MG, DAILY
  11. IPRATROPIUM/ALBUTEROL [Concomitant]
     Dosage: 1 DF, Q4H
  12. ENOXAPARIN [Concomitant]
     Indication: DEEP VEIN THROMBOSIS
     Dosage: 30 MG, Q12H
     Route: 058

REACTIONS (3)
  - International normalised ratio increased [Recovered/Resolved]
  - Haemorrhage [Recovered/Resolved]
  - Drug interaction [Recovered/Resolved]
